FAERS Safety Report 18504974 (Version 3)
Quarter: 2021Q3

REPORT INFORMATION
  Report Type: Report from Study
  Country: DE (occurrence: DE)
  Receive Date: 20201115
  Receipt Date: 20210810
  Transmission Date: 20211014
  Serious: Yes (Hospitalization)
  Sender: FDA-Public Use
  Company Number: DE-CELLTRION INC.-2020DE028909

PATIENT

DRUGS (15)
  1. CALCITROL [CALCITRIOL] [Concomitant]
     Active Substance: CALCITRIOL
     Dosage: 3X950 MG CALCITROL/TAG
  2. REMICADE [Concomitant]
     Active Substance: INFLIXIMAB
     Dosage: 275 MG
     Dates: start: 202007, end: 202008
  3. VIGANTOLETTEN [Concomitant]
     Active Substance: CHOLECALCIFEROL
     Dosage: 1X1000 IE VIGANTOLETTEN/DAY
  4. PREDNISOLON [PREDNISOLONE] [Concomitant]
     Active Substance: PREDNISOLONE
     Dosage: 10 MILLIGRAM (1X10 MG PREDNISOLON/DAY)
  5. TRAMAL [Concomitant]
     Active Substance: TRAMADOL
     Dosage: 1X100 MG TRAMAL LONG/DAY
  6. HYDROXYCHLOROQUINE [Concomitant]
     Active Substance: HYDROXYCHLOROQUINE
  7. NOVALGIN (METAMIZOLE SODIUM) [Concomitant]
     Active Substance: METAMIZOLE SODIUM
     Dosage: 30 DROPS. NOVALGIN B.B.
  8. SAROTEN [Concomitant]
     Active Substance: AMITRIPTYLINE
     Dosage: 1X25 MG SAROTEN/DAY
  9. PREGABALIN. [Concomitant]
     Active Substance: PREGABALIN
     Dosage: 4X75 MG PREGABALIN/DAY
  10. REMICADE [Concomitant]
     Active Substance: INFLIXIMAB
     Dosage: 165 MILLIGRAM, EVEY 8 WEEKS (STOP DATE: 06FEB2020)
     Dates: start: 201905, end: 202002
  11. PANTOZOL [Concomitant]
     Active Substance: PANTOPRAZOLE SODIUM
     Dosage: 1X40 MG PANTOZOL/DAY
  12. METHOTREXATE. [Concomitant]
     Active Substance: METHOTREXATE
  13. CT?P13 [Suspect]
     Active Substance: INFLIXIMAB-DYYB
     Indication: PRODUCT USED FOR UNKNOWN INDICATION
     Dosage: 120 MILLIGRAM, EVERY 2 WEEKS
     Route: 058
     Dates: start: 202003, end: 202006
  14. ARCOXIA [Concomitant]
     Active Substance: ETORICOXIB
     Dosage: 1X90 MG ARCOXIA/DAY
  15. RINVOQ [Concomitant]
     Active Substance: UPADACITINIB
     Dosage: 15 MG
     Dates: start: 202008

REACTIONS (8)
  - Urinary tract infection [Recovered/Resolved]
  - Spinal osteoarthritis [Unknown]
  - Periarthritis [Unknown]
  - Arthralgia [Unknown]
  - Spinal disorder [Unknown]
  - Rheumatoid arthritis [Recovered/Resolved]
  - Syncope [Recovered/Resolved]
  - Fall [Recovered/Resolved]

NARRATIVE: CASE EVENT DATE: 20200413
